FAERS Safety Report 21923168 (Version 2)
Quarter: 2023Q1

REPORT INFORMATION
  Report Type: Spontaneous
  Country: US (occurrence: US)
  Receive Date: 20230129
  Receipt Date: 20230205
  Transmission Date: 20230418
  Serious: No
  Sender: FDA-Public Use
  Company Number: US-JNJFOC-20230131981

PATIENT
  Sex: Female

DRUGS (1)
  1. ROGAINE [Suspect]
     Active Substance: MINOXIDIL
     Indication: Product used for unknown indication
     Dosage: DOSE: SHE WAS NOT SURE.
     Route: 065
     Dates: start: 202211

REACTIONS (1)
  - Hypersensitivity [Recovered/Resolved]

NARRATIVE: CASE EVENT DATE: 20221215
